FAERS Safety Report 6851317-2 (Version None)
Quarter: 2010Q3

REPORT INFORMATION
  Report Type: 
  Country: None (occurrence: None)
  Receive Date: 20100717
  Receipt Date: 20080114
  Transmission Date: 20110219
  Serious: No
  Sender: FDA-Public Use
  Company Number: US-PFIZER INC-2008004864

PATIENT
  Sex: Female
  Weight: 50 kg

DRUGS (7)
  1. CHANTIX [Suspect]
     Indication: SMOKING CESSATION THERAPY
     Dates: start: 20070101
  2. MAGNESIUM [Concomitant]
  3. TYLENOL (CAPLET) [Concomitant]
  4. MONTELUKAST SODIUM [Concomitant]
  5. TOPROL-XL [Concomitant]
  6. THYROID TAB [Concomitant]
  7. OXYBUTYNIN CHLORIDE [Concomitant]

REACTIONS (2)
  - ABNORMAL DREAMS [None]
  - NAUSEA [None]
